FAERS Safety Report 5974341-0 (Version None)
Quarter: 2008Q4

REPORT INFORMATION
  Report Type: 
  Country: None (occurrence: None)
  Receive Date: 20081128
  Receipt Date: 20081121
  Transmission Date: 20090506
  Serious: Yes (Life-Threatening)
  Sender: FDA-Public Use
  Company Number: 2008-185866-NL

PATIENT
  Age: 18 Year
  Sex: Female
  Weight: 45 kg

DRUGS (16)
  1. MUSCULAX [Suspect]
     Indication: MUSCLE RELAXANT THERAPY
     Dosage: 8 MG ONCE INTRAVENOUS (NOS)
     Dates: start: 20080208, end: 20080208
  2. MUSCULAX [Suspect]
     Indication: MUSCLE RELAXANT THERAPY
     Dosage: 12 MG ONCE INTRAVENOUS (NOS)
     Route: 042
     Dates: start: 20080208, end: 20080208
  3. DEXAMETHASONE SODIUM PHOSPHATE [Suspect]
     Indication: PROPHYLAXIS
     Dosage: 8 MG INTRAVENOUS (NOS)
     Route: 042
     Dates: start: 20080208, end: 20080208
  4. DEXAMETHASONE SODIUM PHOSPHATE [Suspect]
     Indication: SWELLING
     Dosage: 8 MG INTRAVENOUS (NOS)
     Route: 042
     Dates: start: 20080208, end: 20080208
  5. PROPOFOL [Suspect]
     Indication: INDUCTION OF ANAESTHESIA
     Dosage: 90 MG INTRAVENOUS (NOS
     Route: 042
     Dates: start: 20080208, end: 20080208
  6. PROPOFOL [Suspect]
     Indication: MAINTENANCE OF ANAESTHESIA
     Dosage: 90 MG INTRAVENOUS (NOS
     Route: 042
     Dates: start: 20080208, end: 20080208
  7. PROPOFOL [Suspect]
     Indication: INDUCTION OF ANAESTHESIA
     Dosage: DF INTRAVENOUS (NOS)
     Route: 042
     Dates: start: 20080208, end: 20080208
  8. PROPOFOL [Suspect]
     Indication: MAINTENANCE OF ANAESTHESIA
     Dosage: DF INTRAVENOUS (NOS)
     Route: 042
     Dates: start: 20080208, end: 20080208
  9. SEVOFLURANE [Suspect]
     Indication: INDUCTION OF ANAESTHESIA
     Dosage: DF INTRAVENOUS (NOS)
     Dates: start: 20080208, end: 20080208
  10. SEVOFLURANE [Suspect]
     Indication: MAINTENANCE OF ANAESTHESIA
     Dosage: DF INTRAVENOUS (NOS)
     Dates: start: 20080208, end: 20080208
  11. REMIFENTANIL HYDROCHLORIDE [Suspect]
     Indication: PAIN
     Dosage: DF INTRAVENOUS (NOS)
     Route: 042
     Dates: start: 20080208, end: 20080208
  12. FENTANYL-100 [Suspect]
     Indication: PAIN
     Dosage: 200 UG INTRAVENOUS (NOS)
     Route: 042
     Dates: start: 20080208, end: 20080208
  13. CEFAZOLIN SODIUM [Suspect]
     Indication: INFECTION PROPHYLAXIS
     Dosage: 1 G INTRAVENOUS (NOS
     Route: 042
     Dates: start: 20080208, end: 20080208
  14. FUROSEMIDE [Suspect]
     Indication: DIURETIC THERAPY
     Dosage: 10 MG INTRAVENOUS (NOS)
     Route: 042
     Dates: start: 20080208, end: 20080208
  15. SODIUM BICARBONATE [Suspect]
     Indication: ACIDOSIS
     Dosage: 20 ML INTRAVENOUS
     Route: 042
     Dates: start: 20080208, end: 20080208
  16. ATROPINE SULFATE [Suspect]
     Indication: ANAESTHETIC PREMEDICATION
     Dosage: 0.25 MG INTRAVENOUS (NOS)
     Route: 042
     Dates: start: 20080208, end: 20080208

REACTIONS (5)
  - END-TIDAL CO2 INCREASED [None]
  - HEART RATE INCREASED [None]
  - HYPERTHERMIA MALIGNANT [None]
  - METABOLIC ACIDOSIS [None]
  - PROCEDURAL COMPLICATION [None]
